FAERS Safety Report 21529855 (Version 3)
Quarter: 2023Q4

REPORT INFORMATION
  Report Type: Spontaneous
  Country: US (occurrence: US)
  Receive Date: 20221031
  Receipt Date: 20231023
  Transmission Date: 20240110
  Serious: No
  Sender: FDA-Public Use
  Company Number: US-PFIZER INC-PV202200093096

PATIENT
  Age: 66 Year
  Sex: Female

DRUGS (8)
  1. DOCETAXEL [Suspect]
     Active Substance: DOCETAXEL
     Indication: Breast cancer female
     Dosage: 160 MG, SINGLE (CYCLE 1)
     Dates: start: 20130228, end: 20130228
  2. DOCETAXEL [Suspect]
     Active Substance: DOCETAXEL
     Dosage: 160 MG, SINGLE (CYCLE 2)
     Dates: start: 20130321, end: 20130321
  3. DOCETAXEL [Suspect]
     Active Substance: DOCETAXEL
     Dosage: 160 MG, SINGLE (CYCLE 3)
     Dates: start: 20130411, end: 20130411
  4. DOCETAXEL [Suspect]
     Active Substance: DOCETAXEL
     Dosage: 160 MG, SINGLE (CYCLE 4)
     Dates: start: 20130502, end: 20130502
  5. DOCETAXEL [Suspect]
     Active Substance: DOCETAXEL
     Dosage: 160 MG, SINGLE (CYCLE 5)
     Dates: start: 20130523, end: 20130523
  6. DOCETAXEL [Suspect]
     Active Substance: DOCETAXEL
     Dosage: 160 MG, SINGLE (CYCLE 6)
     Dates: start: 20130614, end: 20130614
  7. CARBOPLATIN [Concomitant]
     Active Substance: CARBOPLATIN
     Indication: Chemotherapy
     Dosage: UNK
  8. HERCEPTIN [Concomitant]
     Active Substance: TRASTUZUMAB
     Indication: Chemotherapy
     Dosage: UNK

REACTIONS (3)
  - Lacrimation increased [Not Recovered/Not Resolved]
  - Lacrimal structure injury [Not Recovered/Not Resolved]
  - Dacryostenosis acquired [Not Recovered/Not Resolved]

NARRATIVE: CASE EVENT DATE: 20201204
